FAERS Safety Report 17673181 (Version 1)
Quarter: 2020Q2

REPORT INFORMATION
  Report Type: Spontaneous
  Country: US (occurrence: US)
  Receive Date: 20200415
  Receipt Date: 20200415
  Transmission Date: 20200713
  Serious: Yes (Hospitalization)
  Sender: FDA-Public Use
  Company Number: US-TEVA-2020-US-1222393

PATIENT
  Age: 45 Year
  Sex: Female

DRUGS (2)
  1. HYDROCHLOROTHIAZIDE. [Suspect]
     Active Substance: HYDROCHLOROTHIAZIDE
     Indication: HYPERTENSION
     Route: 065
  2. CALCITONIN [Suspect]
     Active Substance: CALCITONIN
     Indication: HYPERCALCAEMIA
     Route: 065

REACTIONS (4)
  - Hypercalcaemia [Recovering/Resolving]
  - Type 3 diabetes mellitus [Unknown]
  - Pancreatitis necrotising [Recovering/Resolving]
  - Drug ineffective [Unknown]
